FAERS Safety Report 23160540 (Version 2)
Quarter: 2023Q4

REPORT INFORMATION
  Report Type: Spontaneous
  Country: PT (occurrence: PT)
  Receive Date: 20231108
  Receipt Date: 20231122
  Transmission Date: 20240110
  Serious: Yes (Life-Threatening, Hospitalization)
  Sender: FDA-Public Use
  Company Number: PT-ELI_LILLY_AND_COMPANY-PT202311004718

PATIENT
  Age: 71 Year
  Sex: Male
  Weight: 76 kg

DRUGS (4)
  1. TALTZ [Suspect]
     Active Substance: IXEKIZUMAB
     Indication: Psoriasis
     Dosage: 80 MG, OTHER (EVERY 4 WEEKS)
     Route: 058
     Dates: start: 202010, end: 20211122
  2. TALTZ [Suspect]
     Active Substance: IXEKIZUMAB
     Dosage: UNK UNK, UNKNOWN
     Route: 065
     Dates: start: 20220517
  3. ACECLOFENAC [Concomitant]
     Active Substance: ACECLOFENAC
     Indication: Product used for unknown indication
     Dosage: 90 MG, PRN
     Route: 048
     Dates: start: 201707, end: 202003
  4. METHOTREXATE [Concomitant]
     Active Substance: METHOTREXATE
     Indication: Product used for unknown indication
     Dosage: 15 MG, WEEKLY (1/W)
     Route: 065
     Dates: start: 201707, end: 202003

REACTIONS (1)
  - Rectal adenocarcinoma [Recovered/Resolved]

NARRATIVE: CASE EVENT DATE: 20211122
